FAERS Safety Report 16760706 (Version 2)
Quarter: 2019Q3

REPORT INFORMATION
  Report Type: Report from Study
  Country: US (occurrence: US)
  Receive Date: 20190830
  Receipt Date: 20190919
  Transmission Date: 20191005
  Serious: Yes (Hospitalization)
  Sender: FDA-Public Use
  Company Number: US-ACTELION-A-NJ2017-154277

PATIENT
  Age: 86 Year
  Sex: Female

DRUGS (15)
  1. DALIRESP [Concomitant]
     Active Substance: ROFLUMILAST
     Dosage: 500 MG, QD
  2. CELEBREX [Concomitant]
     Active Substance: CELECOXIB
     Dosage: 50 MG, QD
  3. ONDANSETRON [Concomitant]
     Active Substance: ONDANSETRON
     Dosage: 4 MG, PRN
  4. ELIQUIS [Concomitant]
     Active Substance: APIXABAN
     Dosage: 2.5 MG, QD
  5. AMBIEN [Concomitant]
     Active Substance: ZOLPIDEM TARTRATE
     Dosage: 10 MG, QD
  6. PROAIR HFA [Concomitant]
     Active Substance: ALBUTEROL SULFATE
     Dosage: 2 INHALATIONS, DAILY
  7. HYDROXYCHLOROQUINE [Concomitant]
     Active Substance: HYDROXYCHLOROQUINE
     Dosage: 100 MG, QD
  8. SPIRIVA [Concomitant]
     Active Substance: TIOTROPIUM BROMIDE MONOHYDRATE
     Dosage: 1 INHALATION, QD
  9. TRAMADOL. [Concomitant]
     Active Substance: TRAMADOL
     Dosage: 50 MG, QD
  10. PROLIA [Concomitant]
     Active Substance: DENOSUMAB
     Dosage: UNK INJECTABLE
  11. COREG [Concomitant]
     Active Substance: CARVEDILOL
     Dosage: 40 MG, QD
  12. ADVAIR HFA [Concomitant]
     Active Substance: FLUTICASONE PROPIONATE\SALMETEROL XINAFOATE
     Dosage: 500/50 MG, BID
  13. LANTUS [Concomitant]
     Active Substance: INSULIN GLARGINE
     Dosage: 100 U, QD
  14. NEXIUM [Concomitant]
     Active Substance: ESOMEPRAZOLE MAGNESIUM
     Dosage: 40 MG, QD
  15. OPSUMIT [Suspect]
     Active Substance: MACITENTAN
     Indication: PULMONARY ARTERIAL HYPERTENSION
     Dosage: 10 MG, QD
     Route: 048
     Dates: start: 20170318

REACTIONS (11)
  - General physical health deterioration [Not Recovered/Not Resolved]
  - Spinal pain [Unknown]
  - Back pain [Unknown]
  - Arthralgia [Unknown]
  - Malaise [Not Recovered/Not Resolved]
  - Bronchitis [Unknown]
  - Arthritis [Unknown]
  - Nephrolithiasis [Recovered/Resolved]
  - Nasal congestion [Unknown]
  - Headache [Unknown]
  - Product dose omission [Unknown]

NARRATIVE: CASE EVENT DATE: 20170518
